FAERS Safety Report 5303188-3 (Version None)
Quarter: 2007Q2

REPORT INFORMATION
  Report Type: 
  Country: None (occurrence: None)
  Receive Date: 20070420
  Receipt Date: 20070410
  Transmission Date: 20071010
  Serious: Yes (Hospitalization)
  Sender: FDA-Public Use
  Company Number: GB-ROCHE-457661

PATIENT
  Age: 59 Year
  Sex: Male

DRUGS (49)
  1. MYCOPHENOLATE MOFETIL [Suspect]
     Route: 042
     Dates: start: 20060201, end: 20060201
  2. MYCOPHENOLATE MOFETIL [Suspect]
     Route: 042
     Dates: start: 20060202, end: 20060205
  3. MYCOPHENOLATE MOFETIL [Suspect]
     Route: 042
     Dates: start: 20060206, end: 20060206
  4. MYCOPHENOLATE MOFETIL [Suspect]
     Dosage: CHANGE OF ROUTE OF ADMINISTRATION
     Route: 048
     Dates: start: 20060206, end: 20060206
  5. MYCOPHENOLATE MOFETIL [Suspect]
     Dosage: RETURN TOWARDS PROTOCOL DOSE
     Route: 048
     Dates: start: 20060207, end: 20060212
  6. MYCOPHENOLATE MOFETIL [Suspect]
     Dosage: ADVERSE EVENT / TOXICITY
     Route: 048
     Dates: start: 20060213, end: 20060707
  7. MYCOPHENOLATE MOFETIL [Suspect]
     Dosage: ADVERSE EVENT / TOXICITY
     Route: 048
     Dates: start: 20060708
  8. DACLIZUMAB [Suspect]
     Dosage: 2MG/KG AT 20:30
     Route: 042
     Dates: start: 20060131, end: 20060131
  9. DACLIZUMAB [Suspect]
     Dosage: 1MG/KG AT 11:22
     Route: 042
     Dates: start: 20060207, end: 20060207
  10. TACROLIMUS [Suspect]
     Dosage: ADJUSTED TO REACH PREDEFINED TARGET LEVELS
     Route: 048
     Dates: start: 20060206
  11. HYDROCORTISONE [Suspect]
     Route: 065
     Dates: start: 20060131, end: 20060131
  12. HYDROCORTISONE [Suspect]
     Dosage: NORMAL DOSE
     Route: 065
     Dates: start: 20060201, end: 20060204
  13. PREDNISOLONE [Suspect]
     Dosage: TAPERED ACCORDING TO LOCAL PROTOCOL
     Route: 065
     Dates: start: 20060205, end: 20060605
  14. PROPOFOL [Concomitant]
     Indication: SEDATION
     Dates: start: 20060131, end: 20060131
  15. 1 CONCOMITANT DRUG [Concomitant]
     Dosage: DRUG NAME: ALFENTANYL
     Dates: start: 20060131, end: 20060131
  16. ATRACURIUM BESYLATE [Concomitant]
     Dosage: INDICATION: PARALYSING AGENT
     Dates: start: 20060131, end: 20060131
  17. AUGMENTIN '125' [Concomitant]
     Indication: ANTI-INFECTIVE THERAPY
     Dates: start: 20060131, end: 20060201
  18. GENTAMICIN [Concomitant]
     Indication: ANTI-INFECTIVE THERAPY
     Dates: start: 20060131, end: 20060131
  19. NORADRENALINE [Concomitant]
     Indication: DRUG THERAPY
     Dates: start: 20060131, end: 20060131
  20. CALCIUM [Concomitant]
     Dosage: INDICATION: TO MAINTAIN CALCIUM LEVELS
     Route: 042
     Dates: start: 20060131, end: 20060131
  21. APROTININ [Concomitant]
     Dosage: INDICATION: HEMOSTATIC AGENT
     Dates: start: 20060131, end: 20060131
  22. ACTRAPID [Concomitant]
     Indication: BLOOD GLUCOSE ABNORMAL
     Dates: start: 20060131, end: 20060206
  23. GLYCOPYRROLATE [Concomitant]
     Indication: PROPHYLAXIS
     Dates: start: 20060131, end: 20060131
  24. CHLORHEXIDINE [Concomitant]
     Dosage: BODY WASH
     Dates: start: 20060201, end: 20060204
  25. COTRIMOXAZOLE [Concomitant]
     Indication: ANTI-INFECTIVE THERAPY
     Dates: start: 20060201, end: 20060509
  26. ESOMEPRAZOLE MAGNESIUM [Concomitant]
     Indication: DRUG THERAPY
     Dates: start: 20060131, end: 20060203
  27. FLUCONAZOLE [Concomitant]
     Indication: ANTIFUNGAL PROPHYLAXIS
     Dosage: 1ST THERAPY: 1 FEB 2006 - 3 FEB 2006 2ND THERAPY: 9 FEB 2006 - 13 FEB 2006
     Dates: start: 20060201, end: 20060213
  28. MUPIROCIN OINTMENT [Concomitant]
     Dosage: NASAL OINTMENT
     Dates: start: 20060131, end: 20060204
  29. NYSTATIN [Concomitant]
     Indication: ANTIFUNGAL PROPHYLAXIS
     Dosage: 1ST THERAPY: 1 FEB 2006 - 1 FEB 2006 2ND THERAPY: 7 FEB 2006 - 27 FEB 2006
     Dates: start: 20060201, end: 20060227
  30. PARACETAMOL [Concomitant]
     Dates: start: 20060201, end: 20060227
  31. SALINE NEBULIZER [Concomitant]
     Dosage: INDICATION: TO LOOSEN CHEST SECRETIONS
     Dates: start: 20060201, end: 20060207
  32. TAZOCIN [Concomitant]
     Indication: ANTI-INFECTIVE THERAPY
     Dates: start: 20060201, end: 20060206
  33. CHLORPROMAZINE [Concomitant]
     Indication: SEDATION
     Dates: start: 20060201, end: 20060203
  34. LORAZEPAM [Concomitant]
     Indication: SEDATION
     Dates: start: 20060202, end: 20060202
  35. VANCOMYCIN [Concomitant]
     Indication: ANTI-INFECTIVE THERAPY
     Dates: start: 20060201, end: 20060204
  36. HALOPERIDOL [Concomitant]
     Indication: SEDATION
     Dates: start: 20060202, end: 20060202
  37. TRAMADOL HCL [Concomitant]
     Dates: start: 20060201, end: 20060213
  38. MAGNESIUM [Concomitant]
     Route: 042
     Dates: start: 20060201, end: 20060201
  39. POTASSIUM ACETATE [Concomitant]
     Route: 042
     Dates: start: 20060131, end: 20060204
  40. MORPHINE [Concomitant]
     Route: 042
     Dates: start: 20060131, end: 20060203
  41. MIDAZOLAM HCL [Concomitant]
     Indication: SEDATION
     Dates: start: 20060131, end: 20060201
  42. FOLIC ACID [Concomitant]
     Indication: VITAMIN B12 DEFICIENCY
     Dates: start: 20051115, end: 20060213
  43. LACTULOSE [Concomitant]
     Indication: CONSTIPATION
     Dates: start: 20060203, end: 20060204
  44. LANSOPRAZOLE [Concomitant]
     Indication: DRUG THERAPY
     Dates: start: 20060205
  45. ATORVASTATIN CALCIUM [Concomitant]
     Dosage: INDICATION: TO LOWER CHOLESTEROL
     Dates: start: 20050731
  46. INSULIN GLARGINE [Concomitant]
     Indication: BLOOD GLUCOSE ABNORMAL
     Dates: start: 20051207
  47. NOVORAPID [Concomitant]
     Indication: BLOOD GLUCOSE ABNORMAL
     Dates: start: 20051215, end: 20060629
  48. SENNA [Concomitant]
     Indication: CONSTIPATION
     Dates: start: 20060206, end: 20060206
  49. METRONIDAZOLE [Concomitant]
     Indication: ANTI-INFECTIVE THERAPY
     Dates: start: 20060211, end: 20060220

REACTIONS (6)
  - BLOOD BILIRUBIN INCREASED [None]
  - BLOOD POTASSIUM INCREASED [None]
  - HAEMOGLOBIN DECREASED [None]
  - PERITONITIS SCLEROSING [None]
  - PLATELET COUNT DECREASED [None]
  - WHITE BLOOD CELL COUNT DECREASED [None]
